FAERS Safety Report 7677370-4 (Version None)
Quarter: 2011Q3

REPORT INFORMATION
  Report Type: 
  Country: None (occurrence: None)
  Receive Date: 20110811
  Receipt Date: 20110802
  Transmission Date: 20111222
  Serious: Yes (Hospitalization)
  Sender: FDA-Public Use
  Company Number: FR-ELI_LILLY_AND_COMPANY-FR201108001075

PATIENT
  Age: 73 Year
  Sex: Male

DRUGS (7)
  1. BISOPROLOL FUMARATE [Concomitant]
     Indication: MYOCARDIAL INFARCTION
  2. ASPIRIN [Concomitant]
     Indication: MYOCARDIAL INFARCTION
     Dosage: UNK, UNKNOWN
     Route: 065
  3. OMACOR [Concomitant]
     Indication: MYOCARDIAL INFARCTION
  4. CRESTOR [Concomitant]
     Indication: MYOCARDIAL INFARCTION
  5. RAMIPRIL [Concomitant]
     Indication: MYOCARDIAL INFARCTION
     Dosage: UNK, UNKNOWN
     Route: 065
  6. EFFIENT [Suspect]
     Indication: MYOCARDIAL INFARCTION
     Route: 048
  7. INSPRA [Concomitant]
     Indication: MYOCARDIAL INFARCTION
     Dosage: UNK, UNKNOWN
     Route: 065

REACTIONS (2)
  - SUBDURAL HAEMATOMA [None]
  - FALL [None]
